FAERS Safety Report 8573386-4 (Version None)
Quarter: 2012Q3

REPORT INFORMATION
  Report Type: 
  Country: None (occurrence: None)
  Receive Date: 20120806
  Receipt Date: 20120725
  Transmission Date: 20120928
  Serious: Yes (Death)
  Sender: FDA-Public Use
  Company Number: TR-BRISTOL-MYERS SQUIBB COMPANY-16802845

PATIENT
  Age: 42 Year
  Sex: Male

DRUGS (2)
  1. WARFARIN SODIUM [Suspect]
     Indication: CORONARY ARTERY BYPASS
  2. WARFARIN SODIUM [Suspect]
     Indication: CARDIAC PACEMAKER INSERTION

REACTIONS (3)
  - SUBDURAL HAEMATOMA [None]
  - SUBARACHNOID HAEMORRHAGE [None]
  - THROMBOCYTOPENIA [None]
